FAERS Safety Report 18662061 (Version 15)
Quarter: 2025Q1

REPORT INFORMATION
  Report Type: Report from Study
  Country: US (occurrence: US)
  Receive Date: 20201224
  Receipt Date: 20250204
  Transmission Date: 20250409
  Serious: Yes (Hospitalization, Other)
  Sender: TAKEDA
  Company Number: US-TAKEDA-US202023282

PATIENT
  Age: 49 Year
  Sex: Male

DRUGS (4)
  1. HUMAN IMMUNOGLOBULIN G [Suspect]
     Active Substance: HUMAN IMMUNOGLOBULIN G
     Indication: Immunodeficiency common variable
  2. HUMAN IMMUNOGLOBULIN G [Suspect]
     Active Substance: HUMAN IMMUNOGLOBULIN G
     Indication: Primary immunodeficiency syndrome
  3. HUMAN IMMUNOGLOBULIN G [Suspect]
     Active Substance: HUMAN IMMUNOGLOBULIN G
     Dosage: 50 GRAM, MONTHLY
  4. HUMAN IMMUNOGLOBULIN G [Suspect]
     Active Substance: HUMAN IMMUNOGLOBULIN G
     Dosage: UNK, MONTHLY

REACTIONS (30)
  - Anaphylactic reaction [Unknown]
  - Multiple fractures [Unknown]
  - Pneumothorax [Unknown]
  - Skin laceration [Unknown]
  - Road traffic accident [Unknown]
  - Neuropathy peripheral [Unknown]
  - Pulmonary thrombosis [Unknown]
  - Choking [Unknown]
  - Oesophageal candidiasis [Unknown]
  - Gastrooesophageal reflux disease [Unknown]
  - Oesophageal spasm [Unknown]
  - Oesophagitis [Unknown]
  - Gastritis [Unknown]
  - Pneumonia [Unknown]
  - Internal haemorrhage [Unknown]
  - Thrombosis [Unknown]
  - Pulmonary embolism [Unknown]
  - COVID-19 [Recovering/Resolving]
  - Renal pain [Unknown]
  - Exposure to communicable disease [Unknown]
  - Red blood cell count abnormal [Unknown]
  - Blood iron abnormal [Unknown]
  - Influenza like illness [Unknown]
  - Hypersensitivity [Unknown]
  - Mycobacterium tuberculosis complex test positive [Unknown]
  - Sinusitis [Unknown]
  - Gastroenteritis [Unknown]
  - Product dose omission issue [Unknown]
  - Insurance issue [Unknown]
  - Malaise [Unknown]

NARRATIVE: CASE EVENT DATE: 20210820
